FAERS Safety Report 17395736 (Version 1)
Quarter: 2020Q1

REPORT INFORMATION
  Report Type: Spontaneous
  Country: CA (occurrence: CA)
  Receive Date: 20200210
  Receipt Date: 20200210
  Transmission Date: 20200409
  Serious: Yes (Hospitalization, Other)
  Sender: FDA-Public Use
  Company Number: NVSC2020CA032951

PATIENT
  Sex: Female

DRUGS (27)
  1. CELEBREX [Concomitant]
     Active Substance: CELECOXIB
     Indication: PRODUCT USED FOR UNKNOWN INDICATION
     Route: 065
  2. BENZALKONIUM [Concomitant]
     Active Substance: BENZALKONIUM
     Indication: PRODUCT USED FOR UNKNOWN INDICATION
     Route: 065
  3. RHO D IMMUNE GLOBULIN [Concomitant]
     Active Substance: HUMAN RHO(D) IMMUNE GLOBULIN
     Indication: PRODUCT USED FOR UNKNOWN INDICATION
     Dosage: UNK
     Route: 065
  4. SODIUM BORATE [Concomitant]
     Active Substance: SODIUM BORATE
     Indication: PRODUCT USED FOR UNKNOWN INDICATION
     Dosage: UNK
     Route: 065
  5. DISODIUM EDETATE [Concomitant]
     Active Substance: EDETATE DISODIUM
     Indication: PRODUCT USED FOR UNKNOWN INDICATION
     Route: 065
  6. GOLD [Concomitant]
     Active Substance: GOLD
     Indication: PRODUCT USED FOR UNKNOWN INDICATION
     Dosage: UNK
     Route: 065
  7. HUMIRA [Concomitant]
     Active Substance: ADALIMUMAB
     Indication: RHEUMATOID ARTHRITIS
     Dosage: 40.0 MG, CYCLIC
     Route: 058
  8. TOFACITINIB CITRATE [Concomitant]
     Active Substance: TOFACITINIB CITRATE
     Indication: PRODUCT USED FOR UNKNOWN INDICATION
     Dosage: 5.0 UNK (2 EVERY 1 DAY)
     Route: 065
  9. TOFACITINIB CITRATE [Concomitant]
     Active Substance: TOFACITINIB CITRATE
     Dosage: 5.0 G(2 EVERY 1 WEEK)
     Route: 065
  10. ACTEMRA [Suspect]
     Active Substance: TOCILIZUMAB
     Indication: RHEUMATOID ARTHRITIS
     Dosage: 8.0 MG/KG, OT(1 EVERY 1 MONTH)
     Route: 042
  11. IBUPROFEN. [Concomitant]
     Active Substance: IBUPROFEN
     Indication: PRODUCT USED FOR UNKNOWN INDICATION
     Route: 065
  12. ARAVA [Concomitant]
     Active Substance: LEFLUNOMIDE
     Indication: PRODUCT USED FOR UNKNOWN INDICATION
     Dosage: 20 MG
     Route: 065
  13. PHENYLEPHRINE HYDROCHLORIDE INJECTION USP [Suspect]
     Active Substance: PHENYLEPHRINE HYDROCHLORIDE
     Indication: PRODUCT USED FOR UNKNOWN INDICATION
     Route: 065
  14. BENADRYL CREAM [Concomitant]
     Active Substance: DIPHENHYDRAMINE\ZINC ACETATE
     Indication: PRODUCT USED FOR UNKNOWN INDICATION
     Route: 065
  15. ENBREL [Concomitant]
     Active Substance: ETANERCEPT
     Indication: RHEUMATOID ARTHRITIS
     Dosage: 50 MG, OT (1 EVERY 1 WEEKS)
     Route: 058
  16. SULFASALAZINE. [Concomitant]
     Active Substance: SULFASALAZINE
     Indication: RHEUMATOID ARTHRITIS
     Dosage: UNK
     Route: 065
  17. LIPITOR [Concomitant]
     Active Substance: ATORVASTATIN CALCIUM
     Indication: PRODUCT USED FOR UNKNOWN INDICATION
     Route: 065
  18. CIMZIA [Concomitant]
     Active Substance: CERTOLIZUMAB PEGOL
     Indication: PRODUCT USED FOR UNKNOWN INDICATION
     Route: 065
  19. METHOTREXATE. [Concomitant]
     Active Substance: METHOTREXATE
     Indication: RHEUMATOID ARTHRITIS
     Dosage: 15.0 UNK, QW
     Route: 048
  20. METHOTREXATE. [Concomitant]
     Active Substance: METHOTREXATE
     Dosage: UNK
     Route: 058
  21. ORENCIA [Concomitant]
     Active Substance: ABATACEPT
     Indication: PRODUCT USED FOR UNKNOWN INDICATION
     Route: 042
  22. TOFACITINIB CITRATE [Concomitant]
     Active Substance: TOFACITINIB CITRATE
     Dosage: 10.0 UNK (2 EVERY 1 WEEK)
     Route: 065
  23. TOFACITINIB CITRATE [Concomitant]
     Active Substance: TOFACITINIB CITRATE
     Dosage: 5.0 UNK(2 EVERY  1 DAYS)
     Route: 065
  24. XELJANZ [Concomitant]
     Active Substance: TOFACITINIB CITRATE
     Indication: PRODUCT USED FOR UNKNOWN INDICATION
     Route: 065
  25. PREDNISONE. [Concomitant]
     Active Substance: PREDNISONE
     Indication: PRODUCT USED FOR UNKNOWN INDICATION
     Route: 065
  26. BENZALKONIUM CHLORIDE. [Concomitant]
     Active Substance: BENZALKONIUM CHLORIDE
     Indication: PRODUCT USED FOR UNKNOWN INDICATION
     Route: 065
  27. RITUXIMAB. [Concomitant]
     Active Substance: RITUXIMAB
     Indication: PRODUCT USED FOR UNKNOWN INDICATION
     Route: 065

REACTIONS (22)
  - Neoplasm malignant [Unknown]
  - Treatment failure [Unknown]
  - Arthralgia [Unknown]
  - Joint stiffness [Unknown]
  - Therapy non-responder [Unknown]
  - Drug ineffective [Unknown]
  - Arthropathy [Unknown]
  - Contraindicated product administered [Unknown]
  - Drug hypersensitivity [Unknown]
  - Infection [Unknown]
  - Pulmonary toxicity [Unknown]
  - Therapeutic product effect incomplete [Unknown]
  - Joint injury [Unknown]
  - C-reactive protein abnormal [Unknown]
  - Hepatotoxicity [Unknown]
  - Pain in extremity [Unknown]
  - Condition aggravated [Unknown]
  - Joint swelling [Unknown]
  - Musculoskeletal stiffness [Unknown]
  - Drug intolerance [Unknown]
  - Gastrointestinal toxicity [Unknown]
  - Musculoskeletal pain [Unknown]
